FAERS Safety Report 9705445 (Version 2)
Quarter: 2013Q4

REPORT INFORMATION
  Report Type: Spontaneous
  Country: FR (occurrence: FR)
  Receive Date: 20131122
  Receipt Date: 20131122
  Transmission Date: 20140711
  Serious: Yes (Hospitalization, Other)
  Sender: FDA-Public Use
  Company Number: FR-GILEAD-2013-0087043

PATIENT
  Age: 70 Year
  Sex: Female

DRUGS (3)
  1. AMBRISENTAN [Suspect]
     Indication: PULMONARY ARTERIAL HYPERTENSION
     Dosage: 5 MG, QD
     Route: 048
     Dates: start: 201212, end: 2013
  2. AMBRISENTAN [Suspect]
     Dosage: 10 MG, QD
     Route: 048
  3. TACROLIMUS [Concomitant]
     Indication: PROPHYLAXIS AGAINST TRANSPLANT REJECTION
     Dosage: UNK
     Route: 048

REACTIONS (6)
  - Oliguria [Recovered/Resolved]
  - Pruritus allergic [Recovered/Resolved]
  - Dyspnoea [Recovered/Resolved]
  - Nausea [Recovered/Resolved]
  - Headache [Recovered/Resolved]
  - Drug ineffective [Unknown]
